FAERS Safety Report 13164565 (Version 1)
Quarter: 2017Q1

REPORT INFORMATION
  Report Type: Spontaneous
  Country: US (occurrence: US)
  Receive Date: 20170130
  Receipt Date: 20170130
  Transmission Date: 20170428
  Serious: No
  Sender: FDA-Public Use
  Company Number: US-009507513-1701USA006620

PATIENT
  Age: 87 Year
  Sex: Male

DRUGS (2)
  1. BELSOMRA [Suspect]
     Active Substance: SUVOREXANT
     Indication: INSOMNIA
     Dosage: 20 MG, UNK
     Route: 048
     Dates: start: 20170101
  2. BELSOMRA [Suspect]
     Active Substance: SUVOREXANT
     Dosage: 20MG TABLET, 1/2 TABLET
     Route: 048
     Dates: start: 201701

REACTIONS (2)
  - Somnolence [Not Recovered/Not Resolved]
  - Wrong technique in product usage process [Unknown]

NARRATIVE: CASE EVENT DATE: 201701
